FAERS Safety Report 13097190 (Version 1)
Quarter: 2017Q1

REPORT INFORMATION
  Report Type: Spontaneous
  Country: US (occurrence: US)
  Receive Date: 20170107
  Receipt Date: 20170107
  Transmission Date: 20170428
  Serious: Yes (Other)
  Sender: FDA-Public Use
  Company Number: None

PATIENT
  Age: 44 Year
  Sex: Female
  Weight: 67.5 kg

DRUGS (16)
  1. METFORMIN [Concomitant]
     Active Substance: METFORMIN HYDROCHLORIDE
  2. CALCIUM [Concomitant]
     Active Substance: CALCIUM
  3. 5-HTP [Concomitant]
     Active Substance: OXITRIPTAN
  4. BIOTIN [Concomitant]
     Active Substance: BIOTIN
  5. VITAMIN C [Concomitant]
     Active Substance: ASCORBIC ACID
  6. FISH OIL [Concomitant]
     Active Substance: FISH OIL
  7. VITAMIN D3 [Concomitant]
     Active Substance: CHOLECALCIFEROL
  8. SPIRULINA [Concomitant]
     Active Substance: SPIRULINA
  9. MULTI VITAMIN [Concomitant]
     Active Substance: VITAMINS
  10. VITAMIN A [Concomitant]
     Active Substance: VITAMIN A
  11. TURMERIC [Concomitant]
     Active Substance: TURMERIC
  12. AMINO MAX 21 [Concomitant]
  13. MAGNESIUM [Concomitant]
     Active Substance: MAGNESIUM
  14. LEVOTHYROXIN [Suspect]
     Active Substance: LEVOTHYROXINE
     Indication: HYPOTHYROIDISM
     Dosage: ?          QUANTITY:1 TABLET(S);?
     Route: 048
     Dates: start: 20161216, end: 20161229
  15. SELENIUM [Concomitant]
     Active Substance: SELENIUM
  16. ALPHA LIPOIC ACID [Concomitant]
     Active Substance: .ALPHA.-LIPOIC ACID

REACTIONS (2)
  - Therapy change [None]
  - Cardiac flutter [None]

NARRATIVE: CASE EVENT DATE: 20170102
